FAERS Safety Report 24139042 (Version 1)
Quarter: 2024Q3

REPORT INFORMATION
  Report Type: Spontaneous
  Country: US (occurrence: US)
  Receive Date: 20240726
  Receipt Date: 20240726
  Transmission Date: 20241016
  Serious: No
  Sender: PRINSTON PHARMACEUTICAL
  Company Number: US-PRINSTON PHARMACEUTICAL INC.-2024PRN00171

PATIENT
  Age: 82 Year
  Sex: Female
  Weight: 60.146 kg

DRUGS (9)
  1. VALSARTAN [Suspect]
     Active Substance: VALSARTAN
     Indication: Hypertension
     Dosage: 80 MG, 1X/DAY
     Dates: start: 202210, end: 2023
  2. VALSARTAN [Suspect]
     Active Substance: VALSARTAN
     Dosage: 40 MG, 2X/DAY (ONE TABLET IN THE MORNING AND ONE IN THE EVENING)
     Dates: start: 2023, end: 2023
  3. VALSARTAN [Suspect]
     Active Substance: VALSARTAN
     Dosage: 80 MG, 2X/DAY
     Dates: start: 2023
  4. VALSARTAN [Suspect]
     Active Substance: VALSARTAN
     Dosage: 120 MG, 1X/DAY
  5. VALSARTAN [Suspect]
     Active Substance: VALSARTAN
     Dosage: 80 MG, 2X/DAY
     Dates: start: 2023
  6. LEVOTHYROXINE [Suspect]
     Active Substance: LEVOTHYROXINE\LEVOTHYROXINE SODIUM
     Indication: Hypothyroidism
     Dosage: UNK, 1X/DAY
  7. LEVOTHYROXINE [Suspect]
     Active Substance: LEVOTHYROXINE\LEVOTHYROXINE SODIUM
     Dosage: 50 MG, EVERY 48 HOURS
  8. LEVOTHYROXINE [Suspect]
     Active Substance: LEVOTHYROXINE\LEVOTHYROXINE SODIUM
     Dosage: 75 MG, EVERY 48 HOURS
  9. VITAMINS NOS [Concomitant]
     Active Substance: VITAMINS

REACTIONS (12)
  - Weight decreased [Not Recovered/Not Resolved]
  - Muscle mass [Not Recovered/Not Resolved]
  - Hypersomnia [Not Recovered/Not Resolved]
  - Palpitations [Not Recovered/Not Resolved]
  - Stress [Not Recovered/Not Resolved]
  - Pollakiuria [Not Recovered/Not Resolved]
  - Hypertension [Recovered/Resolved]
  - Drug ineffective [Recovered/Resolved]
  - Blood sodium decreased [Not Recovered/Not Resolved]
  - COVID-19 [Unknown]
  - Cardiac disorder [Not Recovered/Not Resolved]
  - Alanine aminotransferase increased [Recovered/Resolved]

NARRATIVE: CASE EVENT DATE: 20221001
